FAERS Safety Report 4679880-0 (Version None)
Quarter: 2005Q2

REPORT INFORMATION
  Report Type: 
  Country: None (occurrence: None)
  Receive Date: 20050602
  Receipt Date: 20050125
  Transmission Date: 20051028
  Serious: No
  Sender: FDA-Public Use
  Company Number: A0542157A

PATIENT
  Age: 36 Year
  Sex: Male

DRUGS (3)
  1. AUGMENTIN [Suspect]
     Indication: BACTERIAL INFECTION
     Dosage: 875MG SINGLE DOSE
     Route: 048
     Dates: start: 20050103, end: 20050104
  2. NYQUIL [Concomitant]
  3. TYLENOL (CAPLET) [Concomitant]

REACTIONS (4)
  - DIARRHOEA [None]
  - INFLAMMATION [None]
  - OEDEMA PERIPHERAL [None]
  - RASH PRURITIC [None]
